FAERS Safety Report 15964294 (Version 2)
Quarter: 2019Q1

REPORT INFORMATION
  Report Type: Spontaneous
  Country: JP (occurrence: JP)
  Receive Date: 20190215
  Receipt Date: 20190302
  Transmission Date: 20190417
  Serious: Yes (Death)
  Sender: FDA-Public Use
  Company Number: JP-AMGEN-JPNSP2019023648

PATIENT
  Age: 90 Year
  Sex: Female

DRUGS (1)
  1. NESP [Suspect]
     Active Substance: DARBEPOETIN ALFA
     Indication: NEPHROGENIC ANAEMIA
     Dosage: 60 MUG, QMO
     Route: 058

REACTIONS (1)
  - Pneumonia [Fatal]
